FAERS Safety Report 5981283-3 (Version None)
Quarter: 2008Q4

REPORT INFORMATION
  Report Type: 
  Country: None (occurrence: None)
  Receive Date: 20081126
  Receipt Date: 20081113
  Transmission Date: 20090506
  Serious: Yes (Hospitalization)
  Sender: FDA-Public Use
  Company Number: POMP-1000398

PATIENT
  Sex: 0

DRUGS (1)
  1. MYOZYME [Suspect]
     Indication: GLYCOGEN STORAGE DISEASE TYPE II
     Dates: start: 20080229

REACTIONS (2)
  - COLLAPSE OF LUNG [None]
  - RESPIRATORY DISTRESS [None]
